FAERS Safety Report 5880224-7 (Version None)
Quarter: 2008Q3

REPORT INFORMATION
  Report Type: 
  Country: None (occurrence: None)
  Receive Date: 20080912
  Receipt Date: 20080905
  Transmission Date: 20090109
  Serious: Yes (Hospitalization)
  Sender: FDA-Public Use
  Company Number: CL-ABBOTT-08P-034-0472421-00

PATIENT
  Age: 42 Year
  Sex: Female

DRUGS (3)
  1. SIBUTRAMINE [Suspect]
     Indication: OBESITY
     Route: 065
  2. SERTRALINE [Suspect]
     Indication: OBESITY
     Route: 065
  3. CHLORDIAZEPOXIDE HCL [Suspect]
     Indication: OBESITY
     Route: 065

REACTIONS (7)
  - GLIOSIS [None]
  - IRRITABILITY [None]
  - MANIA [None]
  - POVERTY OF THOUGHT CONTENT [None]
  - PSYCHOTIC DISORDER [None]
  - SLEEP DISORDER [None]
  - WEIGHT INCREASED [None]
